FAERS Safety Report 9029193 (Version 1)
Quarter: 2013Q1

REPORT INFORMATION
  Report Type: Spontaneous
  Country: US (occurrence: US)
  Receive Date: 20130125
  Receipt Date: 20130125
  Transmission Date: 20140127
  Serious: Yes (Other)
  Sender: FDA-Public Use
  Company Number: US-JNJFOC-20130109520

PATIENT
  Age: 28 Year
  Sex: Female

DRUGS (2)
  1. DOXORUBICIN [Suspect]
     Indication: EWING^S SARCOMA
     Dosage: FOR 18 CYCLES (CUMULATIVE DOSE 1,080 MG)
     Route: 042
     Dates: start: 200609, end: 200808
  2. DOXORUBICIN [Suspect]
     Indication: EWING^S SARCOMA
     Dosage: STOPPED AFTER THREE CYCLES, FINAL CUMULATIVE DOSE 1,260 MG
     Route: 042
     Dates: start: 200912

REACTIONS (4)
  - Dyspnoea exertional [Unknown]
  - Oropharyngeal squamous cell carcinoma [Unknown]
  - Bone giant cell tumour malignant [Unknown]
  - Off label use [Unknown]
